FAERS Safety Report 12847063 (Version 1)
Quarter: 2016Q4

REPORT INFORMATION
  Report Type: Report from Study
  Country: US (occurrence: US)
  Receive Date: 20161014
  Receipt Date: 20161014
  Transmission Date: 20170207
  Serious: Yes (Death, Other)
  Sender: FDA-Public Use
  Company Number: US-ROCHE-1777964

PATIENT

DRUGS (9)
  1. VOXTALISIB [Suspect]
     Active Substance: VOXTALISIB
     Indication: B-CELL LYMPHOMA
     Route: 065
  2. VOXTALISIB [Suspect]
     Active Substance: VOXTALISIB
     Indication: MANTLE CELL LYMPHOMA
  3. RITUXIMAB [Suspect]
     Active Substance: RITUXIMAB
     Indication: CHRONIC LYMPHOCYTIC LEUKAEMIA
  4. VOXTALISIB [Suspect]
     Active Substance: VOXTALISIB
     Indication: CHRONIC LYMPHOCYTIC LEUKAEMIA
  5. BENDAMUSTINE [Suspect]
     Active Substance: BENDAMUSTINE
     Indication: CHRONIC LYMPHOCYTIC LEUKAEMIA
  6. RITUXIMAB [Suspect]
     Active Substance: RITUXIMAB
     Indication: B-CELL LYMPHOMA
     Route: 042
  7. BENDAMUSTINE [Suspect]
     Active Substance: BENDAMUSTINE
     Indication: B-CELL LYMPHOMA
     Route: 065
  8. RITUXIMAB [Suspect]
     Active Substance: RITUXIMAB
     Indication: MANTLE CELL LYMPHOMA
  9. BENDAMUSTINE [Suspect]
     Active Substance: BENDAMUSTINE
     Indication: MANTLE CELL LYMPHOMA

REACTIONS (16)
  - Septic shock [Fatal]
  - Decreased appetite [Unknown]
  - Dehydration [Unknown]
  - Anaemia [Unknown]
  - Stomatitis [Unknown]
  - Thrombocytopenia [Unknown]
  - Rash [Unknown]
  - Febrile neutropenia [Unknown]
  - Dyspnoea [Unknown]
  - Neutropenia [Unknown]
  - Nausea [Unknown]
  - Hypokalaemia [Unknown]
  - Urinary tract infection [Unknown]
  - Headache [Unknown]
  - Asthenia [Unknown]
  - Vomiting [Unknown]
